FAERS Safety Report 10026922 (Version 2)
Quarter: 2014Q2

REPORT INFORMATION
  Report Type: Spontaneous
  Country: JP (occurrence: None)
  Receive Date: 20140319
  Receipt Date: 20140417
  Transmission Date: 20141212
  Serious: Yes (Hospitalization)
  Sender: FDA-Public Use
  Company Number: FK201400892

PATIENT
  Age: 74 Year
  Sex: Male

DRUGS (13)
  1. IRINOTECAN [Suspect]
     Indication: RECTAL CANCER METASTATIC
     Dosage: 150 MG/M2, 1.5 HR
  2. IRINOTECAN [Suspect]
     Indication: METASTASES TO LIVER
     Dosage: 150 MG/M2, 1.5 HR
  3. IRINOTECAN [Suspect]
     Indication: METASTASES TO LUNG
     Dosage: 150 MG/M2, 1.5 HR
  4. LEUCOVORIN CALCIUM (MANUFACTURER UNKNOWN) (LEUCOVORIN CALCIUM) (LEUCOVORIN CALCIUM) [Suspect]
     Indication: RECTAL CANCER METASTATIC
     Dosage: 200 MG/M2, 1.5 HR
  5. LEUCOVORIN CALCIUM (MANUFACTURER UNKNOWN) (LEUCOVORIN CALCIUM) (LEUCOVORIN CALCIUM) [Suspect]
     Indication: METASTASES TO LIVER
     Dosage: 200 MG/M2, 1.5 HR
  6. LEUCOVORIN CALCIUM (MANUFACTURER UNKNOWN) (LEUCOVORIN CALCIUM) (LEUCOVORIN CALCIUM) [Suspect]
     Indication: METASTASES TO LUNG
     Dosage: 200 MG/M2, 1.5 HR
  7. FLUOROURACIL (MANUFACTURER UNKNOWN) (FLUOROURACIL) (FLUOROURACIL) [Suspect]
     Indication: RECTAL CANCER METASTATIC
     Dosage: 2400 MG/M2, 46 HR
     Route: 040
  8. FLUOROURACIL (MANUFACTURER UNKNOWN) (FLUOROURACIL) (FLUOROURACIL) [Suspect]
     Indication: METASTASES TO LIVER
     Dosage: 2400 MG/M2, 46 HR
     Route: 040
  9. FLUOROURACIL (MANUFACTURER UNKNOWN) (FLUOROURACIL) (FLUOROURACIL) [Suspect]
     Indication: METASTASES TO LUNG
     Dosage: 2400 MG/M2, 46 HR
     Route: 040
  10. BEVACIZUMAB (BEVACIZUMAB) (BEVACIZUMAB) [Suspect]
     Indication: RECTAL CANCER METASTATIC
  11. BEVACIZUMAB (BEVACIZUMAB) (BEVACIZUMAB) [Suspect]
     Indication: METASTASES TO LIVER
  12. BEVACIZUMAB (BEVACIZUMAB) (BEVACIZUMAB) [Suspect]
     Indication: METASTASES TO LUNG
  13. OXALIPLATIN (OXALIPLATIN) [Concomitant]

REACTIONS (9)
  - Hepatitis B [None]
  - Metastases to liver [None]
  - Metastases to lung [None]
  - Malignant neoplasm progression [None]
  - Rectal cancer [None]
  - Stomatitis [None]
  - Recurrent cancer [None]
  - Drug ineffective [None]
  - Hepatic failure [None]
